FAERS Safety Report 9091229 (Version 1)
Quarter: 2013Q1

REPORT INFORMATION
  Report Type: Report from Study
  Country: US (occurrence: US)
  Receive Date: 20130201
  Receipt Date: 20130201
  Transmission Date: 20140127
  Serious: No
  Sender: FDA-Public Use
  Company Number: US-ABBOTT-12P-163-1027022-00

PATIENT
  Sex: Female

DRUGS (1)
  1. HUMIRA [Suspect]
     Indication: RHEUMATOID ARTHRITIS
     Dosage: 40 MG (0.8ML)
     Route: 058

REACTIONS (6)
  - Feeling abnormal [Unknown]
  - Hypoaesthesia [Unknown]
  - Swelling face [Unknown]
  - Hypoaesthesia [Unknown]
  - Nasal discomfort [Unknown]
  - Injection site pain [Unknown]
